FAERS Safety Report 5196767-8 (Version None)
Quarter: 2006Q4

REPORT INFORMATION
  Report Type: 
  Country: None (occurrence: None)
  Receive Date: 20061227
  Receipt Date: 20061212
  Transmission Date: 20070319
  Serious: Yes (Other)
  Sender: FDA-Public Use
  Company Number: 2006153182

PATIENT
  Sex: Female

DRUGS (2)
  1. LYRICA [Suspect]
     Indication: PAIN IN EXTREMITY
     Dosage: (75 MG, 1 D)
     Dates: start: 20060101, end: 20060101
  2. LIPITOR [Concomitant]

REACTIONS (2)
  - ABASIA [None]
  - BURNING SENSATION [None]
